FAERS Safety Report 8508333-4 (Version None)
Quarter: 2012Q3

REPORT INFORMATION
  Report Type: 
  Country: None (occurrence: None)
  Receive Date: 20120713
  Receipt Date: 20120704
  Transmission Date: 20120928
  Serious: Yes (Other)
  Sender: FDA-Public Use
  Company Number: CA-JNJFOC-20120702976

PATIENT
  Sex: Female
  Weight: 59.2 kg

DRUGS (8)
  1. PREVACID [Concomitant]
     Route: 065
  2. FOLIC ACID [Concomitant]
     Route: 065
  3. REMICADE [Suspect]
     Indication: CROHN'S DISEASE
     Route: 042
     Dates: start: 20120523
  4. ACTONEL [Concomitant]
     Route: 065
  5. IMODIUM [Concomitant]
     Route: 065
  6. METHOTREXATE [Concomitant]
     Route: 065
  7. ESTROGEN [Concomitant]
     Route: 065
  8. ZESTORETIC [Concomitant]
     Route: 065

REACTIONS (1)
  - BALANCE DISORDER [None]
